FAERS Safety Report 6389595-9 (Version None)
Quarter: 2009Q4

REPORT INFORMATION
  Report Type: 
  Country: None (occurrence: None)
  Receive Date: 20091006
  Receipt Date: 20070905
  Transmission Date: 20100525
  Serious: Yes (Other)
  Sender: FDA-Public Use
  Company Number: US-ASTRAZENECA-2006UW11510

PATIENT
  Age: 17533 Day
  Sex: Female
  Weight: 80.7 kg

DRUGS (22)
  1. SEROQUEL [Suspect]
     Indication: ANXIETY
     Dosage: 25-100 MG AT BEDTIME
     Route: 048
     Dates: start: 20030821
  2. SEROQUEL [Suspect]
     Indication: INSOMNIA
     Dosage: 25-100 MG AT BEDTIME
     Route: 048
     Dates: start: 20030821
  3. SEROQUEL [Suspect]
     Indication: DEPRESSION
     Dosage: 25-100 MG AT BEDTIME
     Route: 048
     Dates: start: 20030821
  4. SEROQUEL [Suspect]
     Route: 048
     Dates: start: 20040104, end: 20070301
  5. SEROQUEL [Suspect]
     Route: 048
     Dates: start: 20040104, end: 20070301
  6. SEROQUEL [Suspect]
     Route: 048
     Dates: start: 20040104, end: 20070301
  7. ATIVAN [Concomitant]
     Dates: start: 19990610
  8. ATIVAN [Concomitant]
     Dosage: 0.5 -1 MG DAILY
     Route: 048
     Dates: start: 20030908
  9. WELLBUTRIN [Concomitant]
     Dates: start: 19990610
  10. WELLBUTRIN [Concomitant]
     Dates: start: 20030101
  11. GLIPIZIDE [Concomitant]
     Dosage: 10 MG ONCE A DAY, 10 MG TAKE THREE TI
     Dates: start: 20011219
  12. ASPIRIN [Concomitant]
     Dates: start: 20020422
  13. PLAVIX [Concomitant]
     Dates: start: 20020422
  14. PLETAL [Concomitant]
     Dosage: 50 MG ONCE A DAY, 50 MG TAKE 1 TABLET TWIC
     Dates: start: 20020422
  15. PRINIVIL [Concomitant]
     Dates: start: 20020422
  16. LIPITOR [Concomitant]
     Dosage: 20-80 MG
     Dates: start: 20020422
  17. ZOLOFT [Concomitant]
     Dosage: 25-200 MG DAILY
     Route: 048
     Dates: start: 20030331
  18. AMBIEN [Concomitant]
     Route: 048
     Dates: start: 20030824
  19. ATENOLOL [Concomitant]
     Dosage: 50 MG ,TAKE 1 TABLET EVER
     Dates: start: 20030821
  20. NEURONTIN [Concomitant]
     Dosage: 100 MG, TAKE 2 CAPSULES TW
     Dates: start: 20030903
  21. METFORMIN HCL [Concomitant]
     Dosage: 500 MG TAKE 1 TABLET TWICE
     Dates: start: 20030824
  22. ISOSORBIDE [Concomitant]
     Dates: start: 20040105

REACTIONS (6)
  - DIABETES MELLITUS [None]
  - DIABETES MELLITUS INADEQUATE CONTROL [None]
  - DIABETIC NEUROPATHY [None]
  - FATIGUE [None]
  - HYPERGLYCAEMIA [None]
  - TYPE 1 DIABETES MELLITUS [None]
